FAERS Safety Report 8266178-7 (Version None)
Quarter: 2012Q2

REPORT INFORMATION
  Report Type: 
  Country: None (occurrence: None)
  Receive Date: 20120406
  Receipt Date: 20120404
  Transmission Date: 20120825
  Serious: Yes (Death, Hospitalization, Other)
  Sender: FDA-Public Use
  Company Number: PHEH2009US03380

PATIENT
  Sex: Female

DRUGS (15)
  1. TRICOR [Concomitant]
  2. AVASTIN [Concomitant]
  3. TAXOTERE [Concomitant]
  4. FOSAMAX [Concomitant]
  5. LIPITOR [Concomitant]
     Indication: BLOOD CHOLESTEROL INCREASED
  6. ZOMETA [Suspect]
     Route: 042
     Dates: end: 20080104
  7. COUMADIN [Suspect]
  8. CALCIUM CARBONATE [Concomitant]
  9. MULTIVITAMIN [Concomitant]
  10. COUMADIN [Suspect]
  11. DECADRON #1 [Concomitant]
  12. FOLIC ACID [Concomitant]
  13. ACTONEL [Concomitant]
  14. ZETIA [Concomitant]
  15. PENICILLIN ^GRUNENTHAL^ [Concomitant]

REACTIONS (67)
  - DISABILITY [None]
  - HIATUS HERNIA [None]
  - EMPHYSEMA [None]
  - COUGH [None]
  - LYMPHADENOPATHY MEDIASTINAL [None]
  - COMPRESSION FRACTURE [None]
  - JAW FRACTURE [None]
  - DEATH [None]
  - ASTHENIA [None]
  - RASH [None]
  - ODYNOPHAGIA [None]
  - VENA CAVA THROMBOSIS [None]
  - SYNCOPE [None]
  - OSTEONECROSIS OF JAW [None]
  - INJURY [None]
  - HAEMORRHOIDS [None]
  - IRON DEFICIENCY ANAEMIA [None]
  - FATIGUE [None]
  - INSOMNIA [None]
  - HYPOAESTHESIA [None]
  - BLOOD URINE PRESENT [None]
  - TOOTH ABSCESS [None]
  - ADRENAL DISORDER [None]
  - COLITIS [None]
  - HEMIPARESIS [None]
  - METASTASES TO LYMPH NODES [None]
  - DIZZINESS [None]
  - LOSS OF CONSCIOUSNESS [None]
  - ANHEDONIA [None]
  - CYST [None]
  - DYSPNOEA [None]
  - VIITH NERVE PARALYSIS [None]
  - PAIN [None]
  - EMBOLISM [None]
  - THROMBOSIS [None]
  - PERICARDIAL CALCIFICATION [None]
  - FEELING COLD [None]
  - PYREXIA [None]
  - HYPERHIDROSIS [None]
  - NASAL CONGESTION [None]
  - TOOTH INFECTION [None]
  - HEPATIC MASS [None]
  - THYROID NEOPLASM [None]
  - BLADDER DISORDER [None]
  - CHEST PAIN [None]
  - FALL [None]
  - LETHARGY [None]
  - CONVULSION [None]
  - METASTASES TO CENTRAL NERVOUS SYSTEM [None]
  - RENAL CYST [None]
  - AORTIC ARTERIOSCLEROSIS [None]
  - METASTASES TO LIVER [None]
  - THORACIC VERTEBRAL FRACTURE [None]
  - METASTASES TO SPINE [None]
  - LIVER SCAN ABNORMAL [None]
  - SUPERIOR VENA CAVA SYNDROME [None]
  - DEMENTIA [None]
  - MENTAL STATUS CHANGES [None]
  - COAGULOPATHY [None]
  - HYPOTENSION [None]
  - HYPERLIPIDAEMIA [None]
  - ANXIETY [None]
  - DEEP VEIN THROMBOSIS [None]
  - DIVERTICULUM INTESTINAL [None]
  - METASTASES TO BONE [None]
  - HILAR LYMPHADENOPATHY [None]
  - SUBDURAL HAEMATOMA [None]
